FAERS Safety Report 8588180 (Version 2)
Quarter: 2012Q4

REPORT INFORMATION
  Report Type: 
  Country: BR (occurrence: BR)
  Receive Date: 20120531
  Receipt Date: 20121102
  Transmission Date: 20130627
  Serious: Yes (Hospitalization)
  Sender: FDA-Public Use
  Company Number: BR-ASTRAZENECA-2012SE33595

PATIENT
  Age: 56 Year
  Sex: Female
  Weight: 60 kg

DRUGS (3)
  1. SYMBICORT TURBUHALER [Suspect]
     Indication: CHRONIC OBSTRUCTIVE PULMONARY DISEASE
     Dosage: 320/9 MCG 3 DOSES WITH UNKNOWN FREQUENCY
     Route: 055
  2. SYMBICORT TURBUHALER [Suspect]
     Indication: CHRONIC OBSTRUCTIVE PULMONARY DISEASE
     Dosage: 160/4.5 MCG 5 INHALATIONS/DAYS
     Route: 055
     Dates: start: 2001
  3. SINGULAIR [Concomitant]

REACTIONS (5)
  - Inflammation [Recovering/Resolving]
  - Oesophagitis [Recovering/Resolving]
  - Pleurisy [Recovered/Resolved]
  - Dyspnoea [Recovered/Resolved]
  - Pleural fibrosis [Not Recovered/Not Resolved]
